FAERS Safety Report 9355858 (Version 2)
Quarter: 2013Q2

REPORT INFORMATION
  Report Type: Spontaneous
  Country: JP (occurrence: JP)
  Receive Date: 20130619
  Receipt Date: 20130626
  Transmission Date: 20140414
  Serious: Yes (Other)
  Sender: FDA-Public Use
  Company Number: JP-009507513-1306JPN006267

PATIENT
  Age: 67 Year
  Sex: Male

DRUGS (1)
  1. PROPECIA TABLETS 0.2MG [Suspect]
     Indication: ANDROGENETIC ALOPECIA
     Dosage: 1 MG, (1, 1 DAY)
     Route: 048
     Dates: start: 200608

REACTIONS (1)
  - Prostate cancer [Not Recovered/Not Resolved]
